FAERS Safety Report 8009963-9 (Version None)
Quarter: 2011Q4

REPORT INFORMATION
  Report Type: 
  Country: None (occurrence: None)
  Receive Date: 20111228
  Receipt Date: 20111215
  Transmission Date: 20120403
  Serious: Yes (Hospitalization)
  Sender: FDA-Public Use
  Company Number: PHHY2011BE110131

PATIENT
  Sex: Male

DRUGS (4)
  1. CERTICAN [Suspect]
     Indication: LIVER TRANSPLANT
     Dosage: 1.5 MG,
     Route: 048
     Dates: start: 20110601
  2. MEDROL [Concomitant]
     Dosage: 4 MG, DAILY
  3. NEXIUM [Concomitant]
     Dosage: 20 MG, UNK
  4. CALCIUM CARBONATE [Concomitant]
     Dosage: 1.25 G, UNK

REACTIONS (6)
  - VISUAL ACUITY REDUCED [None]
  - VISUAL IMPAIRMENT [None]
  - BLINDNESS [None]
  - OPTIC ISCHAEMIC NEUROPATHY [None]
  - PERIORBITAL DISORDER [None]
  - PAPILLOEDEMA [None]
